FAERS Safety Report 23733257 (Version 1)
Quarter: 2024Q2

REPORT INFORMATION
  Report Type: Spontaneous
  Country: GB (occurrence: GB)
  Receive Date: 20240411
  Receipt Date: 20240411
  Transmission Date: 20240716
  Serious: Yes (Life-Threatening, Hospitalization, Other)
  Sender: FDA-Public Use
  Company Number: None

PATIENT
  Age: 57 Year
  Sex: Female
  Weight: 80 kg

DRUGS (11)
  1. EXEMESTANE [Suspect]
     Active Substance: EXEMESTANE
     Dosage: 1 DF, 1X/DAY
     Dates: start: 20240111, end: 20240321
  2. ANASTROZOLE [Concomitant]
     Active Substance: ANASTROZOLE
     Dosage: 1 DF, 1X/DAY
     Dates: start: 20240321
  3. ASPIRIN [Concomitant]
     Active Substance: ASPIRIN
     Dosage: (LIFELONG)
     Dates: start: 20240308
  4. ATORVASTATIN [Concomitant]
     Active Substance: ATORVASTATIN
     Dosage: 1 DF, 1X/DAY
     Dates: start: 20240308
  5. BISOPROLOL [Concomitant]
     Active Substance: BISOPROLOL\BISOPROLOL FUMARATE
     Dosage: 1 DF, 1X/DAY
     Dates: start: 20240308
  6. CLOPIDOGREL [Concomitant]
     Active Substance: CLOPIDOGREL BISULFATE
     Dosage: UNTIL MARCH 2025 THEN STOP.
     Dates: start: 20240308
  7. FELODIPINE [Concomitant]
     Active Substance: FELODIPINE
     Dosage: 1 DF, 1X/DAY
     Dates: start: 20240304, end: 20240308
  8. FELODIPINE [Concomitant]
     Active Substance: FELODIPINE
     Dosage: 1 DF, 1X/DAY
     Dates: start: 20240308
  9. NITROGLYCERIN [Concomitant]
     Active Substance: NITROGLYCERIN
     Dosage: SPRAY ONE OR TWO DOSES UNDER TONGUE AND THEN CLOSE MOUTH AS DIRECTED
     Route: 060
     Dates: start: 20240308
  10. LANSOPRAZOLE [Concomitant]
     Active Substance: LANSOPRAZOLE
     Dosage: EACH MORNING WHILST TAKING CLOPIDOGREL AND ASPIRIN.
     Dates: start: 20240308
  11. HERCEPTIN [Concomitant]
     Active Substance: TRASTUZUMAB
     Dates: start: 20230704

REACTIONS (3)
  - Acute myocardial infarction [Recovering/Resolving]
  - Headache [Unknown]
  - Hypertension [Unknown]

NARRATIVE: CASE EVENT DATE: 20240228
